FAERS Safety Report 19157918 (Version 1)
Quarter: 2021Q2

REPORT INFORMATION
  Report Type: Spontaneous
  Country: US (occurrence: US)
  Receive Date: 20210419
  Receipt Date: 20210419
  Transmission Date: 20210717
  Serious: No
  Sender: FDA-Public Use
  Company Number: None

PATIENT
  Age: 38 Year
  Sex: Male
  Weight: 96 kg

DRUGS (1)
  1. GAMUNEX [Suspect]
     Active Substance: HUMAN IMMUNOGLOBULIN G

REACTIONS (2)
  - Adverse drug reaction [None]
  - Product quality issue [None]

NARRATIVE: CASE EVENT DATE: 20210416
